FAERS Safety Report 20986787 (Version 7)
Quarter: 2022Q4

REPORT INFORMATION
  Report Type: Report from Study
  Country: FR (occurrence: FR)
  Receive Date: 20220621
  Receipt Date: 20221124
  Transmission Date: 20230113
  Serious: Yes (Hospitalization, Other)
  Sender: FDA-Public Use
  Company Number: FR-TAKEDA-2022TUS041211

PATIENT
  Age: 62 Year
  Sex: Female
  Weight: 59 kg

DRUGS (56)
  1. TEDUGLUTIDE [Suspect]
     Active Substance: TEDUGLUTIDE
     Indication: Short-bowel syndrome
     Dosage: 3.15 MILLIGRAM, 3/WEEK
     Route: 042
     Dates: start: 20170322, end: 20180603
  2. TEDUGLUTIDE [Suspect]
     Active Substance: TEDUGLUTIDE
     Indication: Short-bowel syndrome
     Dosage: 3.15 MILLIGRAM, 3/WEEK
     Route: 042
     Dates: start: 20170322, end: 20180603
  3. TEDUGLUTIDE [Suspect]
     Active Substance: TEDUGLUTIDE
     Indication: Short-bowel syndrome
     Dosage: 3.15 MILLIGRAM, 3/WEEK
     Route: 042
     Dates: start: 20170322, end: 20180603
  4. TEDUGLUTIDE [Suspect]
     Active Substance: TEDUGLUTIDE
     Indication: Short-bowel syndrome
     Dosage: 3.15 MILLIGRAM, 3/WEEK
     Route: 042
     Dates: start: 20170322, end: 20180603
  5. TEDUGLUTIDE [Suspect]
     Active Substance: TEDUGLUTIDE
     Dosage: 3 MILLIGRAM, QD
     Route: 042
     Dates: start: 20180604, end: 202006
  6. TEDUGLUTIDE [Suspect]
     Active Substance: TEDUGLUTIDE
     Dosage: 3 MILLIGRAM, QD
     Route: 042
     Dates: start: 20180604, end: 202006
  7. TEDUGLUTIDE [Suspect]
     Active Substance: TEDUGLUTIDE
     Dosage: 3 MILLIGRAM, QD
     Route: 042
     Dates: start: 20180604, end: 202006
  8. TEDUGLUTIDE [Suspect]
     Active Substance: TEDUGLUTIDE
     Dosage: 3 MILLIGRAM, QD
     Route: 042
     Dates: start: 20180604, end: 202006
  9. TEDUGLUTIDE [Suspect]
     Active Substance: TEDUGLUTIDE
     Dosage: 3.2 MILLIGRAM, QD
     Route: 042
     Dates: start: 202006, end: 20210425
  10. TEDUGLUTIDE [Suspect]
     Active Substance: TEDUGLUTIDE
     Dosage: 3.2 MILLIGRAM, QD
     Route: 042
     Dates: start: 202006, end: 20210425
  11. TEDUGLUTIDE [Suspect]
     Active Substance: TEDUGLUTIDE
     Dosage: 3.2 MILLIGRAM, QD
     Route: 042
     Dates: start: 202006, end: 20210425
  12. TEDUGLUTIDE [Suspect]
     Active Substance: TEDUGLUTIDE
     Dosage: 3.2 MILLIGRAM, QD
     Route: 042
     Dates: start: 202006, end: 20210425
  13. TEDUGLUTIDE [Suspect]
     Active Substance: TEDUGLUTIDE
     Dosage: 3 MILLIGRAM, QD
     Route: 042
     Dates: start: 20210426, end: 20210923
  14. TEDUGLUTIDE [Suspect]
     Active Substance: TEDUGLUTIDE
     Dosage: 3 MILLIGRAM, QD
     Route: 042
     Dates: start: 20210426, end: 20210923
  15. TEDUGLUTIDE [Suspect]
     Active Substance: TEDUGLUTIDE
     Dosage: 3 MILLIGRAM, QD
     Route: 042
     Dates: start: 20210426, end: 20210923
  16. TEDUGLUTIDE [Suspect]
     Active Substance: TEDUGLUTIDE
     Dosage: 3 MILLIGRAM, QD
     Route: 042
     Dates: start: 20210426, end: 20210923
  17. TEDUGLUTIDE [Suspect]
     Active Substance: TEDUGLUTIDE
     Dosage: 2.6 MILLIGRAM, QD
     Route: 042
     Dates: start: 20210924
  18. TEDUGLUTIDE [Suspect]
     Active Substance: TEDUGLUTIDE
     Dosage: 2.6 MILLIGRAM, QD
     Route: 042
     Dates: start: 20210924
  19. TEDUGLUTIDE [Suspect]
     Active Substance: TEDUGLUTIDE
     Dosage: 2.6 MILLIGRAM, QD
     Route: 042
     Dates: start: 20210924
  20. TEDUGLUTIDE [Suspect]
     Active Substance: TEDUGLUTIDE
     Dosage: 2.6 MILLIGRAM, QD
     Route: 042
     Dates: start: 20210924
  21. LYRICA [Concomitant]
     Active Substance: PREGABALIN
     Indication: Depression
     Dosage: 50 MILLIGRAM, TID
     Route: 048
     Dates: start: 2018, end: 2021
  22. LYRICA [Concomitant]
     Active Substance: PREGABALIN
     Dosage: 1 INTERNATIONAL UNIT, BID
     Route: 048
     Dates: end: 2017
  23. FENTANYL [Concomitant]
     Active Substance: FENTANYL
     Indication: Pain
     Dosage: 200 MICROGRAM, Q72H
     Route: 062
     Dates: start: 20210305
  24. FENTANYL [Concomitant]
     Active Substance: FENTANYL
     Indication: Back pain
     Dosage: 250 MICROGRAM, Q72H
     Route: 062
     Dates: start: 20210305
  25. FENTANYL [Concomitant]
     Active Substance: FENTANYL
     Indication: Raynaud^s phenomenon
  26. Covid-19 vaccine [Concomitant]
     Indication: COVID-19 prophylaxis
     Dosage: 1 INTERNATIONAL UNIT
     Route: 030
     Dates: start: 202103, end: 202103
  27. Covid-19 vaccine [Concomitant]
     Dosage: 1 INTERNATIONAL UNIT
     Route: 030
     Dates: start: 202104, end: 202104
  28. PANTOPRAZOLE [Concomitant]
     Active Substance: PANTOPRAZOLE
     Indication: Biliary cirrhosis
     Dosage: 40 MILLIGRAM, QD
     Route: 048
  29. DYDROGESTERONE [Concomitant]
     Active Substance: DYDROGESTERONE
     Indication: Biliary cirrhosis
     Dosage: 500 MILLIGRAM, QD
     Route: 048
  30. MIRTAZAPINE [Concomitant]
     Active Substance: MIRTAZAPINE
     Indication: Depression
     Dosage: 15 MILLIGRAM, QD
     Route: 048
     Dates: start: 20220629
  31. ACETONE [Concomitant]
     Active Substance: ACETONE
     Dosage: UNK
     Route: 048
  32. EUPANTOL [Concomitant]
     Active Substance: PANTOPRAZOLE SODIUM
     Indication: Prophylaxis
     Dosage: 40 MILLIGRAM, QD
     Route: 048
  33. ACETAMINOPHEN [Concomitant]
     Active Substance: ACETAMINOPHEN
     Indication: Headache
     Dosage: 1000 MILLIGRAM
     Route: 048
  34. ACETAMINOPHEN [Concomitant]
     Active Substance: ACETAMINOPHEN
     Indication: Pain
  35. BROMAZEPAM [Concomitant]
     Active Substance: BROMAZEPAM
     Indication: Depression
     Dosage: 0.25 INTERNATIONAL UNIT, QD
     Route: 048
  36. SODIUM ALGINATE\SODIUM BICARBONATE [Concomitant]
     Active Substance: SODIUM ALGINATE\SODIUM BICARBONATE
     Dosage: 500 MILLIGRAM, QD
     Route: 048
     Dates: start: 20220629
  37. Temesta [Concomitant]
     Indication: Depression
     Dosage: 1 INTERNATIONAL UNIT, QD
     Route: 048
  38. URSODIOL [Concomitant]
     Active Substance: URSODIOL
     Indication: Cholecystectomy
     Dosage: 250 MILLIGRAM, BID
     Route: 048
  39. TERIPARATIDE [Concomitant]
     Active Substance: TERIPARATIDE
     Indication: Osteoporosis
     Dosage: 1 INTERNATIONAL UNIT, QD
     Route: 048
  40. Previscan [Concomitant]
     Indication: Thrombosis prophylaxis
     Dosage: 20 MILLIGRAM, QD
     Route: 048
  41. METRONIDAZOLE [Concomitant]
     Active Substance: METRONIDAZOLE
     Indication: Inflammation
     Dosage: UNK UNK, QD
     Route: 065
     Dates: start: 20170915
  42. FLUCONAZOLE [Concomitant]
     Active Substance: FLUCONAZOLE
     Indication: Inflammation
     Dosage: UNK UNK, QD
     Dates: start: 20170915
  43. UNSPECIFIED INGREDIENT [Concomitant]
     Active Substance: UNSPECIFIED INGREDIENT
     Indication: Inflammation
     Dosage: UNK UNK, QD
     Route: 065
     Dates: start: 20170916
  44. FENTANYL [Concomitant]
     Active Substance: FENTANYL
     Indication: Back pain
     Dosage: 100 MICROGRAM
     Route: 062
     Dates: start: 201904, end: 20190619
  45. FENTANYL [Concomitant]
     Active Substance: FENTANYL
     Indication: Rib fracture
     Dosage: 50 MICROGRAM
     Route: 062
     Dates: start: 201904, end: 20190619
  46. FENTANYL [Concomitant]
     Active Substance: FENTANYL
     Dosage: 175 MICROGRAM, QD
     Route: 062
     Dates: start: 20190620, end: 20190622
  47. FENTANYL [Concomitant]
     Active Substance: FENTANYL
     Dosage: 175 MICROGRAM, QD
     Route: 062
     Dates: start: 20190623, end: 20210305
  48. FENTANYL [Concomitant]
     Active Substance: FENTANYL
     Dosage: 200 MICROGRAM, QD
     Route: 062
     Dates: start: 20210305
  49. KETAMINE [Concomitant]
     Active Substance: KETAMINE
     Indication: Back pain
     Dosage: 30 MILLIGRAM, QD
     Route: 042
     Dates: start: 20190618, end: 20190619
  50. DOLIPRANE [Concomitant]
     Active Substance: ACETAMINOPHEN
     Indication: Pyrexia
     Dosage: 500 MILLIGRAM, BID
     Route: 048
     Dates: start: 20220629
  51. TRIMEBUTINE [Concomitant]
     Active Substance: TRIMEBUTINE
     Indication: Abdominal pain
     Dosage: 100 MILLIGRAM
     Route: 048
     Dates: start: 20220629
  52. LANSOPRAZOLE [Concomitant]
     Active Substance: LANSOPRAZOLE
     Dosage: 30 MILLIGRAM, QD
     Route: 048
     Dates: start: 20220629
  53. RACECADOTRIL [Concomitant]
     Active Substance: RACECADOTRIL
     Dosage: 100 MILLIGRAM, TID
     Route: 048
     Dates: start: 20220629
  54. LOPERAMIDE [Concomitant]
     Active Substance: LOPERAMIDE
     Dosage: 2 MILLIGRAM, TID
     Route: 048
     Dates: start: 20220629
  55. VITAMIN K [Concomitant]
     Active Substance: PHYTONADIONE
     Dosage: 1 DOSAGE FORM, 1/WEEK
     Route: 048
     Dates: start: 20220606
  56. VITAMIN B12 [Concomitant]
     Active Substance: CYANOCOBALAMIN
     Dosage: 1 DOSAGE FORM, QD
     Route: 048
     Dates: start: 20220606

REACTIONS (1)
  - Hypovolaemic shock [Recovered/Resolved]

NARRATIVE: CASE EVENT DATE: 20220610
